FAERS Safety Report 6903775-2 (Version None)
Quarter: 2010Q3

REPORT INFORMATION
  Report Type: 
  Country: None (occurrence: None)
  Receive Date: 20100804
  Receipt Date: 20081209
  Transmission Date: 20110219
  Serious: Yes (Hospitalization, Other)
  Sender: FDA-Public Use
  Company Number: US-PFIZER INC-2008154676

PATIENT
  Sex: Female
  Weight: 47.619 kg

DRUGS (2)
  1. LYRICA [Suspect]
     Indication: NEUROPATHY PERIPHERAL
     Dosage: 75 MG, 3X/DAY
     Dates: start: 20070101, end: 20081207
  2. FLEXERIL [Concomitant]
     Dosage: UNK

REACTIONS (2)
  - GASTROENTERITIS VIRAL [None]
  - PANCREATITIS [None]
